FAERS Safety Report 9080836 (Version 2)
Quarter: 2013Q1

REPORT INFORMATION
  Report Type: Spontaneous
  Country: US (occurrence: US)
  Receive Date: 20130218
  Receipt Date: 20130325
  Transmission Date: 20140127
  Serious: No
  Sender: FDA-Public Use
  Company Number: US-PFIZER INC-2013058124

PATIENT
  Sex: 0

DRUGS (1)
  1. FLUCONAZOLE [Suspect]
     Dosage: UNK
     Route: 048

REACTIONS (2)
  - Poor quality drug administered [Unknown]
  - Condition aggravated [Unknown]
